FAERS Safety Report 9367048 (Version 2)
Quarter: 2013Q2

REPORT INFORMATION
  Report Type: Spontaneous
  Country: US (occurrence: US)
  Receive Date: 20130625
  Receipt Date: 20130625
  Transmission Date: 20140414
  Serious: Yes (Hospitalization)
  Sender: FDA-Public Use
  Company Number: US-MYLANLABS-2013S1013112

PATIENT
  Age: 67 Year
  Sex: Female
  Weight: 54.89 kg

DRUGS (10)
  1. DIVALPROEX SODIUM DELAYED RELEASE [Suspect]
     Indication: MOOD DISORDER DUE TO A GENERAL MEDICAL CONDITION
     Route: 048
     Dates: start: 201205, end: 20120616
  2. DIVALPROEX SODIUM DELAYED RELEASE [Suspect]
     Indication: MOOD DISORDER DUE TO A GENERAL MEDICAL CONDITION
     Route: 048
     Dates: start: 20121005
  3. DIVALPROEX SODIUM DELAYED-RELEASE TABLETS USP [Suspect]
     Indication: MOOD DISORDER DUE TO A GENERAL MEDICAL CONDITION
     Route: 048
     Dates: start: 20120616, end: 20120830
  4. DIVALPROEX SODIUM DELAYED RELEASE [Suspect]
     Indication: MOOD DISORDER DUE TO A GENERAL MEDICAL CONDITION
     Route: 048
     Dates: start: 20120831, end: 20121004
  5. LEVOTHYROXINE [Concomitant]
     Indication: HYPOTHYROIDISM
     Route: 048
     Dates: start: 2011
  6. PRAVASTATIN [Concomitant]
     Indication: BLOOD CHOLESTEROL INCREASED
     Dosage: TAKEN FOR YEARS
     Route: 048
  7. RISPERIDONE [Concomitant]
     Indication: MOOD DISORDER DUE TO A GENERAL MEDICAL CONDITION
     Dosage: TAKEN FOR YEARS; 2MG QAM, 3MG QHS
     Route: 048
     Dates: end: 2013
  8. PROPRANOLOL [Concomitant]
     Dosage: TAKEN FOR YEARS
     Route: 048
     Dates: end: 2013
  9. MULTIVITAMIN [Concomitant]
     Dosage: TAKEN FOR YEARS
     Route: 048
  10. BABY ASPIRIN [Concomitant]
     Dosage: TAKEN FOR YEARS
     Route: 048
     Dates: end: 2013

REACTIONS (4)
  - Fall [Not Recovered/Not Resolved]
  - Flatulence [Not Recovered/Not Resolved]
  - Diarrhoea [Not Recovered/Not Resolved]
  - Weight decreased [Not Recovered/Not Resolved]
